FAERS Safety Report 7653988-X (Version None)
Quarter: 2011Q3

REPORT INFORMATION
  Report Type: 
  Country: None (occurrence: None)
  Receive Date: 20110803
  Receipt Date: 20110720
  Transmission Date: 20111222
  Serious: Yes (Other)
  Sender: FDA-Public Use
  Company Number: PHHY2011JP24202

PATIENT
  Age: 66 Year
  Sex: Female
  Weight: 60 kg

DRUGS (3)
  1. NIFEDIPIN - SLOW RELEASE [Concomitant]
     Indication: HYPERTENSION
     Dosage: 10 MG, UNK
     Route: 048
  2. DIOVAN HCT [Suspect]
     Indication: HYPERTENSION
     Dosage: 1 DF, DAILY
     Route: 048
     Dates: start: 20101022, end: 20110311
  3. ZOLPIDEM [Concomitant]
     Indication: INSOMNIA
     Dosage: 5 MG, AT BED TIME
     Route: 048

REACTIONS (7)
  - RASH [None]
  - SWELLING [None]
  - ERYTHEMA [None]
  - OEDEMA [None]
  - DERMATITIS CONTACT [None]
  - PRURITUS [None]
  - ECZEMA [None]
